FAERS Safety Report 4717720-1 (Version None)
Quarter: 2005Q3

REPORT INFORMATION
  Report Type: 
  Country: None (occurrence: None)
  Receive Date: 20050713
  Receipt Date: 20050617
  Transmission Date: 20060218
  Serious: Yes (Other)
  Sender: FDA-Public Use
  Company Number: HQWYE606321JUN05

PATIENT
  Age: 26 Year
  Sex: Female
  Weight: 52.21 kg

DRUGS (4)
  1. ALAVERT [Suspect]
     Indication: HYPERSENSITIVITY
     Dosage: 1 TABLET 1X PER 1 DAY, ORAL
     Route: 048
     Dates: start: 20050616
  2. PAXIL [Concomitant]
  3. LAMICTAL [Concomitant]
  4. DEPO-PROVERA SUSPENSION/INJ [Concomitant]

REACTIONS (1)
  - HYPOMANIA [None]
